FAERS Safety Report 6092082-9 (Version None)
Quarter: 2009Q1

REPORT INFORMATION
  Report Type: 
  Country: None (occurrence: None)
  Receive Date: 20090225
  Receipt Date: 20090212
  Transmission Date: 20090719
  Serious: Yes (Other)
  Sender: FDA-Public Use
  Company Number: DE-PFIZER INC-2009171310

PATIENT

DRUGS (3)
  1. GLADEM [Suspect]
     Dosage: 400MG (100 MG) ONCE
     Route: 048
  2. ALPRAZOLAM [Suspect]
     Dosage: 2.5 MG (0.25MG) ONCE
     Route: 048
  3. DOXEPIN HCL [Suspect]
     Dosage: 500 MG (50 MG), ONCE
     Route: 048

REACTIONS (3)
  - DRUG ABUSE [None]
  - OVERDOSE [None]
  - SUICIDE ATTEMPT [None]
